FAERS Safety Report 7598290-X (Version None)
Quarter: 2011Q3

REPORT INFORMATION
  Report Type: 
  Country: None (occurrence: None)
  Receive Date: 20110708
  Receipt Date: 20110628
  Transmission Date: 20111222
  Serious: Yes (Hospitalization, Other)
  Sender: FDA-Public Use
  Company Number: GB-ABBOTT-11P-167-0712919-00

PATIENT
  Age: 50 Year
  Sex: Female

DRUGS (4)
  1. AMISULPRIDE [Interacting]
     Indication: SCHIZOPHRENIA
     Dosage: 400MG DAILY, 200MG 2 IN 1 DAY
     Route: 048
  2. CLARITHROMYCIN [Suspect]
     Indication: LOWER RESPIRATORY TRACT INFECTION
     Dosage: 1000MG DAILY, 500MG 2 IN 1 DAY
     Route: 065
     Dates: start: 20110109, end: 20110113
  3. REBOXETINE [Interacting]
     Indication: SCHIZOPHRENIA
     Dosage: 10MG DAILY, 6MG MANE 4MG NOCTE
     Route: 048
  4. CLOZARIL [Interacting]
     Indication: SCHIZOPHRENIA
     Dosage: 350MG DAILY, 50MG MANE AND 300MG NOCTE
     Route: 048
     Dates: start: 19970402

REACTIONS (7)
  - CONFUSIONAL STATE [None]
  - DYSPNOEA [None]
  - LOWER RESPIRATORY TRACT INFECTION [None]
  - OXYGEN SATURATION DECREASED [None]
  - BLOOD PRESSURE INCREASED [None]
  - HEART RATE INCREASED [None]
  - DRUG INTERACTION [None]
